FAERS Safety Report 10226436 (Version 1)
Quarter: 2014Q2

REPORT INFORMATION
  Report Type: Spontaneous
  Country: US (occurrence: US)
  Receive Date: 20140609
  Receipt Date: 20140609
  Transmission Date: 20141212
  Serious: No
  Sender: FDA-Public Use
  Company Number: US-AMGEN INC.-USASP2013050475

PATIENT
  Age: 90 Year
  Sex: Female

DRUGS (1)
  1. PROCRIT [Suspect]
     Indication: RENAL FAILURE CHRONIC
     Dosage: 6000 UNIT, UNK
     Route: 065
     Dates: start: 20130712

REACTIONS (3)
  - Sleep apnoea syndrome [Unknown]
  - Obesity [Unknown]
  - Rash [Unknown]
